FAERS Safety Report 24726512 (Version 1)
Quarter: 2024Q4

REPORT INFORMATION
  Report Type: Spontaneous
  Country: US (occurrence: None)
  Receive Date: 20241211
  Receipt Date: 20241211
  Transmission Date: 20250115
  Serious: Yes (Other)
  Sender: Public
  Company Number: None

PATIENT
  Age: 60 Year
  Sex: Female

DRUGS (11)
  1. HUMIRA [Suspect]
     Active Substance: ADALIMUMAB
     Indication: Psoriasis
     Dosage: FREQ: INJECT 1 PEN (40 MG) UNDER THE SKIN (SUBCUTANEOUS INJECTION) EVERY OTHER WEEK
     Route: 058
     Dates: start: 20231028
  2. ASPIRIN [Concomitant]
     Active Substance: ASPIRIN
  3. BUPROPION HYDROCHLORIDE [Concomitant]
     Active Substance: BUPROPION HYDROCHLORIDE
  4. CYCLOBENZAPRINE HYDROCHLORIDE [Concomitant]
     Active Substance: CYCLOBENZAPRINE HYDROCHLORIDE
  5. FLUCONAZOLE [Concomitant]
     Active Substance: FLUCONAZOLE
  6. FLUOXETINE [Concomitant]
     Active Substance: FLUOXETINE HYDROCHLORIDE
  7. LISINOPRIL [Concomitant]
     Active Substance: LISINOPRIL
  8. MELOXICAM [Concomitant]
     Active Substance: MELOXICAM
  9. ONDANSETRON [Concomitant]
     Active Substance: ONDANSETRON
  10. PEG-3350/KCL [Concomitant]
  11. PIMECROLIMUS [Concomitant]
     Active Substance: PIMECROLIMUS

REACTIONS (2)
  - Surgery [None]
  - Therapy interrupted [None]

NARRATIVE: CASE EVENT DATE: 20241024
